FAERS Safety Report 5418752-0 (Version None)
Quarter: 2007Q3

REPORT INFORMATION
  Report Type: 
  Country: None (occurrence: None)
  Receive Date: 20070817
  Receipt Date: 20070807
  Transmission Date: 20080115
  Serious: Yes (Other)
  Sender: FDA-Public Use
  Company Number: US-PFIZER INC-2007065563

PATIENT
  Sex: Male
  Weight: 90.909 kg

DRUGS (4)
  1. NORVASC [Suspect]
     Indication: HYPERTENSION
  2. COLCHICINE [Concomitant]
  3. INDOMETHACIN [Concomitant]
  4. COZAAR [Concomitant]

REACTIONS (2)
  - JOINT SPRAIN [None]
  - X-RAY LIMB ABNORMAL [None]
